FAERS Safety Report 5819341-6 (Version None)
Quarter: 2008Q3

REPORT INFORMATION
  Report Type: 
  Country: None (occurrence: None)
  Receive Date: 20080723
  Receipt Date: 20080708
  Transmission Date: 20090109
  Serious: Yes (Hospitalization)
  Sender: FDA-Public Use
  Company Number: FR-ASTRAZENECA-2008CG01053

PATIENT
  Age: 65 Year
  Sex: Female

DRUGS (2)
  1. FOSCAVIR [Suspect]
     Indication: NECROTISING RETINITIS
     Route: 042
     Dates: start: 20080105, end: 20080214
  2. FOSCAVIR [Suspect]
     Route: 031
     Dates: start: 20080107

REACTIONS (3)
  - GENITAL ULCERATION [None]
  - MOUTH ULCERATION [None]
  - RENAL TUBULAR DISORDER [None]
